FAERS Safety Report 4939228-0 (Version None)
Quarter: 2006Q1

REPORT INFORMATION
  Report Type: 
  Country: None (occurrence: None)
  Receive Date: 20060306
  Receipt Date: 20060217
  Transmission Date: 20060701
  Serious: Yes (Hospitalization)
  Sender: FDA-Public Use
  Company Number: 2005-02287

PATIENT
  Age: 61 Year
  Sex: Male
  Weight: 148 kg

DRUGS (1)
  1. VELCADE [Suspect]
     Indication: MULTIPLE MYELOMA
     Dosage: 2.50 MG, INTRAVENOUS
     Route: 042
     Dates: start: 20050624, end: 20051031

REACTIONS (6)
  - ANGINA PECTORIS [None]
  - DIZZINESS [None]
  - DYSPNOEA EXERTIONAL [None]
  - MYOCARDIAL ISCHAEMIA [None]
  - PALPITATIONS [None]
  - VENTRICULAR HYPOKINESIA [None]
